FAERS Safety Report 7296771-X (Version None)
Quarter: 2011Q1

REPORT INFORMATION
  Report Type: 
  Country: None (occurrence: None)
  Receive Date: 20110216
  Receipt Date: 20110209
  Transmission Date: 20110831
  Serious: Yes (Hospitalization)
  Sender: FDA-Public Use
  Company Number: B0684505A

PATIENT
  Sex: Female

DRUGS (4)
  1. TEGRETOL [Concomitant]
     Route: 048
  2. AMERGE [Suspect]
     Indication: MIGRAINE
     Route: 048
     Dates: start: 20101104, end: 20101110
  3. TRYPTANOL [Concomitant]
     Route: 065
  4. ALEVIATIN [Concomitant]
     Route: 065

REACTIONS (2)
  - CONVULSION [None]
  - LOSS OF CONSCIOUSNESS [None]
